FAERS Safety Report 8050492-4 (Version None)
Quarter: 2012Q1

REPORT INFORMATION
  Report Type: 
  Country: None (occurrence: None)
  Receive Date: 20120117
  Receipt Date: 20120106
  Transmission Date: 20120608
  Serious: Yes (Hospitalization)
  Sender: FDA-Public Use
  Company Number: US-US-EMD SERONO, INC.-7105462

PATIENT
  Sex: Male

DRUGS (3)
  1. REBIF [Suspect]
     Indication: MULTIPLE SCLEROSIS
     Route: 058
     Dates: start: 20111114
  2. DILANTIN [Concomitant]
     Indication: CEREBROVASCULAR ACCIDENT
  3. DILANTIN [Concomitant]
     Indication: THROMBOSIS

REACTIONS (3)
  - DEHYDRATION [None]
  - LYMPHADENOPATHY [None]
  - INFLUENZA [None]
